FAERS Safety Report 8976259 (Version 1)
Quarter: 2012Q4

REPORT INFORMATION
  Report Type: 
  Country: FR (occurrence: FR)
  Receive Date: 20121220
  Receipt Date: 20121220
  Transmission Date: 20130627
  Serious: Yes (Hospitalization, Other)
  Sender: FDA-Public Use
  Company Number: PHHY2012FR114999

PATIENT
  Age: 61 Year
  Sex: Male

DRUGS (7)
  1. MYFORTIC [Suspect]
     Indication: LIVER TRANSPLANT REJECTION
     Dosage: 360 mg, BID
     Route: 048
     Dates: start: 201204, end: 20120924
  2. BACTRIM [Suspect]
     Indication: PROPHYLAXIS
     Dosage: UNK UKN, UNK
     Route: 048
     Dates: start: 201209, end: 201209
  3. GLOBULINES ANTILYMPHOCYTAIRES FRESENIUS [Suspect]
     Indication: LIVER TRANSPLANT REJECTION
     Dosage: 20 mg/ml, UNK
     Route: 042
     Dates: start: 20120907, end: 20120920
  4. TACROLIMUS [Concomitant]
     Dosage: UNK UKN, UNK
     Dates: end: 201208
  5. PROGRAF [Concomitant]
     Indication: LIVER TRANSPLANT REJECTION
     Dosage: UNK UKN, UNK
     Dates: start: 20120907
  6. NEORAL [Concomitant]
     Indication: LIVER TRANSPLANT REJECTION
     Dosage: UNK UKN, UNK
     Route: 048
     Dates: start: 20120831
  7. SOLUPRED [Concomitant]
     Indication: LIVER TRANSPLANT REJECTION
     Dosage: UNK UKN, UNK
     Route: 048
     Dates: start: 20120831

REACTIONS (9)
  - Aplasia pure red cell [Recovered/Resolved]
  - Haemoglobin decreased [Recovered/Resolved]
  - Haemolytic anaemia [Recovered/Resolved]
  - Histiocytosis haematophagic [Recovered/Resolved]
  - Renal failure [Unknown]
  - Erythema infectiosum [Unknown]
  - Human herpesvirus 6 infection [Unknown]
  - Thrombotic microangiopathy [Unknown]
  - Thrombocytopenia [Unknown]
